FAERS Safety Report 5657492-X (Version None)
Quarter: 2008Q1

REPORT INFORMATION
  Report Type: 
  Country: None (occurrence: None)
  Receive Date: 20080310
  Receipt Date: 20080306
  Transmission Date: 20080703
  Serious: Yes (Death)
  Sender: FDA-Public Use
  Company Number: US-GENENTECH-254050

PATIENT
  Age: 66 Year
  Sex: Male

DRUGS (11)
  1. RITUXAN [Suspect]
     Indication: NON-HODGKIN'S LYMPHOMA
     Dosage: 375 MG/M2, UNK
  2. CARBOPLATIN [Concomitant]
     Indication: DRUG USE FOR UNKNOWN INDICATION
  3. CARMUSTINE [Concomitant]
     Indication: DRUG USE FOR UNKNOWN INDICATION
     Dosage: 600 MG/M2, UNK
     Dates: start: 19990215
  4. CYCLOPHOSPHAMIDE [Concomitant]
     Indication: DRUG USE FOR UNKNOWN INDICATION
     Dosage: 90 MG/KG, UNK
     Dates: start: 19990215
  5. CYTARABINE [Concomitant]
     Indication: DRUG USE FOR UNKNOWN INDICATION
     Dosage: 24 G/M2, UNK
     Dates: start: 19990215
  6. DEXAMETHASONE TAB [Concomitant]
     Indication: DRUG USE FOR UNKNOWN INDICATION
  7. DOXORUBICIN HCL [Concomitant]
     Indication: DRUG USE FOR UNKNOWN INDICATION
  8. ETOPOSIDE [Concomitant]
     Indication: DRUG USE FOR UNKNOWN INDICATION
     Dosage: 1600 MG/M2, UNK
     Dates: start: 19990215
  9. IFOSFAMIDE [Concomitant]
     Indication: DRUG USE FOR UNKNOWN INDICATION
  10. PREDNISONE TAB [Concomitant]
     Indication: DRUG USE FOR UNKNOWN INDICATION
  11. VINCRISTINE [Concomitant]
     Indication: DRUG USE FOR UNKNOWN INDICATION

REACTIONS (4)
  - CEREBRAL HAEMORRHAGE [None]
  - PERIRECTAL ABSCESS [None]
  - PNEUMONIA CYTOMEGALOVIRAL [None]
  - THROMBOCYTOPENIA [None]
